FAERS Safety Report 21844464 (Version 1)
Quarter: 2023Q1

REPORT INFORMATION
  Report Type: Spontaneous
  Country: US (occurrence: US)
  Receive Date: 20230110
  Receipt Date: 20230110
  Transmission Date: 20230418
  Serious: No
  Sender: FDA-Public Use
  Company Number: US-MYLANLABS-2023M1001692

PATIENT
  Age: 79 Year
  Sex: Female
  Weight: 62.6 kg

DRUGS (2)
  1. ALPRAZOLAM [Suspect]
     Active Substance: ALPRAZOLAM
     Indication: Sleep disorder
     Dosage: UNK (TOOK ONE, A HALF OF 1 ONE NIGHT)
     Route: 065
     Dates: start: 202211
  2. RAMIPRIL [Concomitant]
     Active Substance: RAMIPRIL
     Dosage: 2.5 MILLIGRAM
     Route: 065

REACTIONS (3)
  - Speech disorder [Recovered/Resolved]
  - Thought blocking [Recovered/Resolved]
  - Wrong technique in product usage process [Unknown]

NARRATIVE: CASE EVENT DATE: 20221101
